FAERS Safety Report 6715427-2 (Version None)
Quarter: 2010Q2

REPORT INFORMATION
  Report Type: 
  Country: None (occurrence: None)
  Receive Date: 20100507
  Receipt Date: 20100507
  Transmission Date: 20101027
  Serious: Yes (Hospitalization)
  Sender: FDA-Public Use
  Company Number: None

PATIENT
  Age: 7 Month
  Sex: Female
  Weight: 8.6183 kg

DRUGS (2)
  1. CONCENTRATED TYLENOL INFANT DROPS [Suspect]
     Indication: LOWER RESPIRATORY TRACT INFECTION
     Dosage: 0.8 ML 4-6 HRS PO
     Route: 048
     Dates: start: 20100417, end: 20100418
  2. CONCENTRATED TYLENOL INFANT DROPS [Suspect]
     Indication: PYREXIA
     Dosage: 0.8 ML 4-6 HRS PO
     Route: 048
     Dates: start: 20100417, end: 20100418

REACTIONS (5)
  - CONVERSION DISORDER [None]
  - CRYING [None]
  - PRODUCT QUALITY ISSUE [None]
  - SOMNOLENCE [None]
  - VOMITING [None]
